FAERS Safety Report 7944627-9 (Version None)
Quarter: 2011Q4

REPORT INFORMATION
  Report Type: 
  Country: None (occurrence: None)
  Receive Date: 20111122
  Receipt Date: 20110808
  Transmission Date: 20120403
  Serious: Yes (Other)
  Sender: FDA-Public Use
  Company Number: PHHY2011US18911

PATIENT
  Age: 40 Year
  Sex: Female

DRUGS (1)
  1. GILENYA [Suspect]
     Indication: MULTIPLE SCLEROSIS
     Dosage: 0.5 MG, QD, ORAL
     Route: 048
     Dates: start: 20101229, end: 20110225

REACTIONS (7)
  - MIGRAINE [None]
  - RETINAL OEDEMA [None]
  - PHOTOPHOBIA [None]
  - MACULAR OEDEMA [None]
  - EYE PAIN [None]
  - VISION BLURRED [None]
  - VISUAL ACUITY REDUCED [None]
